FAERS Safety Report 23846294 (Version 1)
Quarter: 2024Q2

REPORT INFORMATION
  Report Type: Report from Study
  Country: US (occurrence: US)
  Receive Date: 20240512
  Receipt Date: 20240512
  Transmission Date: 20240716
  Serious: Yes (Other)
  Sender: FDA-Public Use
  Company Number: US-ABBVIE-5752040

PATIENT
  Sex: Male

DRUGS (1)
  1. IMBRUVICA [Suspect]
     Active Substance: IBRUTINIB
     Indication: Chronic lymphocytic leukaemia
     Route: 048
     Dates: start: 20220713

REACTIONS (4)
  - Nasal disorder [Recovered/Resolved]
  - Nasal disorder [Unknown]
  - Wound haemorrhage [Unknown]
  - Wound haemorrhage [Recovered/Resolved]

NARRATIVE: CASE EVENT DATE: 20230101
